FAERS Safety Report 5690548-4 (Version None)
Quarter: 2008Q1

REPORT INFORMATION
  Report Type: 
  Country: None (occurrence: None)
  Receive Date: 20080331
  Receipt Date: 20080331
  Transmission Date: 20080703
  Serious: Yes (Other)
  Sender: FDA-Public Use
  Company Number: None

PATIENT
  Sex: Male
  Weight: 24.9478 kg

DRUGS (1)
  1. SINGULAIR [Suspect]
     Indication: ASTHMA
     Dosage: 4MG CHEWABLE ONCE PER DAY PO
     Route: 048
     Dates: start: 20040901, end: 20070601

REACTIONS (3)
  - CRYING [None]
  - EMOTIONAL DISORDER [None]
  - MORBID THOUGHTS [None]
